FAERS Safety Report 6220284-7 (Version None)
Quarter: 2009Q2

REPORT INFORMATION
  Report Type: 
  Country: None (occurrence: None)
  Receive Date: 20090602
  Receipt Date: 20090519
  Transmission Date: 20091009
  Serious: Yes (Hospitalization, Disabling)
  Sender: FDA-Public Use
  Company Number: US-144816

PATIENT
  Age: 20 Year
  Sex: Male

DRUGS (19)
  1. IMMUNE GLOBULIN (HUMAN) [Suspect]
     Indication: VACCINIA
     Dosage: INTRAVENOUS
     Route: 042
     Dates: start: 20090304, end: 20090304
  2. IMMUNE GLOBULIN (HUMAN) [Suspect]
     Indication: VACCINIA
     Dosage: INTRAVENOUS
     Route: 042
     Dates: start: 20090311, end: 20090311
  3. IMMUNE GLOBULIN (HUMAN) [Suspect]
     Indication: VACCINIA
     Dosage: INTRAVENOUS
     Route: 042
     Dates: start: 20090320, end: 20090320
  4. IMMUNE GLOBULIN (HUMAN) [Suspect]
     Indication: VACCINIA
     Dosage: INTRAVENOUS
     Route: 042
     Dates: start: 20090324, end: 20090324
  5. IMMUNE GLOBULIN (HUMAN) [Suspect]
     Indication: VACCINIA
     Dosage: INTRAVENOUS
     Route: 042
     Dates: start: 20090401, end: 20090401
  6. IMMUNE GLOBULIN (HUMAN) [Suspect]
     Indication: VACCINIA
     Dosage: INTRAVENOUS
     Route: 042
     Dates: start: 20090403, end: 20090403
  7. IMMUNE GLOBULIN (HUMAN) [Suspect]
     Indication: VACCINIA
     Dosage: INTRAVENOUS
     Route: 042
     Dates: start: 20090406, end: 20090406
  8. IMMUNE GLOBULIN (HUMAN) [Suspect]
     Indication: VACCINIA
     Dosage: INTRAVENOUS
     Route: 042
     Dates: start: 20090408, end: 20090408
  9. IMMUNE GLOBULIN (HUMAN) [Suspect]
     Indication: VACCINIA
     Dosage: INTRAVENOUS
     Route: 042
     Dates: start: 20090409, end: 20090409
  10. IMMUNE GLOBULIN (HUMAN) [Suspect]
     Indication: VACCINIA
     Dosage: INTRAVENOUS
     Route: 042
     Dates: start: 20090414, end: 20090414
  11. IMMUNE GLOBULIN (HUMAN) [Suspect]
     Indication: VACCINIA
     Dosage: INTRAVENOUS
     Route: 042
     Dates: start: 20090418, end: 20090418
  12. IMMUNE GLOBULIN (HUMAN) [Suspect]
     Indication: VACCINIA
     Dosage: INTRAVENOUS
     Route: 042
     Dates: start: 20090423, end: 20090423
  13. IMMUNE GLOBULIN (HUMAN) [Suspect]
     Indication: VACCINIA
     Dosage: INTRAVENOUS
     Route: 042
     Dates: start: 20090428, end: 20090428
  14. IMMUNE GLOBULIN (HUMAN) [Suspect]
     Indication: VACCINIA
     Dosage: INTRAVENOUS
     Route: 042
     Dates: start: 20090508, end: 20090508
  15. IMIQUIMOD [Concomitant]
  16. CMX-001 (INVESTIGATIONAL DRUG) [Concomitant]
  17. ST-246 (INVESTIGATIONAL DRUG) [Concomitant]
  18. CORTICOSTEROIDS [Concomitant]
  19. NEUPOGEN [Concomitant]

REACTIONS (12)
  - BIOPSY SKIN ABNORMAL [None]
  - CLOSTRIDIAL INFECTION [None]
  - CONTINUOUS HAEMODIAFILTRATION [None]
  - DISEASE PROGRESSION [None]
  - DRUG LEVEL DECREASED [None]
  - DRY GANGRENE [None]
  - LEG AMPUTATION [None]
  - MULTI-ORGAN FAILURE [None]
  - PERIRECTAL ABSCESS [None]
  - PSEUDOMONAL SEPSIS [None]
  - STAPHYLOCOCCAL INFECTION [None]
  - VACCINIA [None]
